FAERS Safety Report 9640860 (Version 1)
Quarter: 2013Q4

REPORT INFORMATION
  Report Type: Spontaneous
  Country: US (occurrence: None)
  Receive Date: 20131022
  Receipt Date: 20131022
  Transmission Date: 20140711
  Serious: Yes (Other)
  Sender: FDA-Public Use
  Company Number: None

PATIENT
  Age: 73 None
  Sex: Female

DRUGS (1)
  1. BOTOX [Suspect]
     Indication: TORTICOLLIS
     Dosage: 300 UNITS EVERY 3 MONTHS. IN TO HEAD AND NECK AREA.
     Dates: start: 201310, end: 201310

REACTIONS (6)
  - Loss of consciousness [None]
  - Hypotension [None]
  - Nausea [None]
  - Muscular weakness [None]
  - Blood potassium decreased [None]
  - Dizziness [None]
